FAERS Safety Report 9330498 (Version 1)
Quarter: 2013Q2

REPORT INFORMATION
  Report Type: Report from Study
  Country: JP (occurrence: JP)
  Receive Date: 20130605
  Receipt Date: 20130605
  Transmission Date: 20140414
  Serious: Yes (Other)
  Sender: FDA-Public Use
  Company Number: JP-009507513-1305JPN007343

PATIENT
  Age: 60 Year
  Sex: Female
  Weight: 60 kg

DRUGS (15)
  1. REBETOL [Suspect]
     Indication: CHRONIC HEPATITIS C
     Dosage: 400 MG, BID
     Route: 048
     Dates: start: 20110606, end: 20110612
  2. REBETOL [Suspect]
     Dosage: 200MG IN MORNING; 400MG IN EVENING
     Route: 048
     Dates: start: 20110613, end: 20110614
  3. REBETOL [Suspect]
     Dosage: 400 MG, BID
     Route: 048
     Dates: start: 20110615, end: 20110812
  4. FERON [Suspect]
     Indication: CHRONIC HEPATITIS C
     Dosage: TOTAL DAILY DOSE: 6(MILLION-BILLION UNIT)
     Route: 041
     Dates: start: 20110606, end: 20110612
  5. FERON [Suspect]
     Dosage: TOTAL DAILY DOSE:3(MILLION-BILLION UNIT)
     Route: 041
     Dates: start: 20110613, end: 20110615
  6. FERON [Suspect]
     Dosage: TOTAL DAILY DOSE:6(MILLION-BILLION UNIT)
     Route: 041
     Dates: start: 20110616, end: 20110725
  7. FERON [Suspect]
     Dosage: TOTAL DAILY DOSE:3(MILLION-BILLION UNIT)TOTAL DAILY DOSE:
     Route: 041
     Dates: start: 20110801, end: 20110812
  8. PEGASYS [Concomitant]
     Indication: CHRONIC HEPATITIS C
     Dosage: 180 MICROGRAM, QW
     Route: 058
     Dates: start: 20110822, end: 20110822
  9. PEGASYS [Concomitant]
     Dosage: 135 MICROGRAM, QW
     Route: 058
     Dates: start: 20110829, end: 20110920
  10. PEGASYS [Concomitant]
     Dosage: 180 MICROGRAM, QW
     Route: 058
     Dates: start: 20111003
  11. PEGASYS [Concomitant]
     Dosage: 180 MICROGRAM, QW
     Route: 058
     Dates: start: 20111028, end: 20120724
  12. PEGASYS [Concomitant]
     Dosage: 90 MICROGRAM, QW
     Route: 058
     Dates: start: 20120730, end: 20121022
  13. UBIRON [Concomitant]
     Dosage: TOTAL DAILY DOSE:300 MG
     Route: 048
     Dates: start: 201106, end: 20111127
  14. UBIRON [Concomitant]
     Dosage: TOTAL DAILY DOSE:600 MG
     Route: 048
     Dates: start: 20111128
  15. AMLODIN OD [Concomitant]
     Indication: HYPERTENSION
     Dosage: TOTAL DAILY DOSE:2.5 MG
     Route: 048
     Dates: start: 20080104

REACTIONS (5)
  - Pancreatitis chronic [Recovering/Resolving]
  - Insomnia [Recovering/Resolving]
  - Decreased appetite [Recovering/Resolving]
  - Platelet count decreased [Recovered/Resolved]
  - White blood cell count decreased [Recovered/Resolved]
